FAERS Safety Report 10210074 (Version 2)
Quarter: 2014Q2

REPORT INFORMATION
  Report Type: Spontaneous
  Country: US (occurrence: US)
  Receive Date: 20140602
  Receipt Date: 20140602
  Transmission Date: 20141212
  Serious: Yes (Hospitalization, Other)
  Sender: FDA-Public Use
  Company Number: US-SA-2014SA022380

PATIENT
  Age: 57 Year
  Sex: Female
  Weight: 125 kg

DRUGS (6)
  1. METOPROLOL [Concomitant]
  2. LEVOTHYROXINE [Concomitant]
  3. LISINOPRIL [Concomitant]
  4. LAMICTAL [Concomitant]
  5. WARFARIN [Concomitant]
  6. FABRAZYME [Suspect]
     Indication: FABRY^S DISEASE
     Route: 042
     Dates: end: 2014

REACTIONS (7)
  - Neuropathy peripheral [Unknown]
  - Heart valve incompetence [Unknown]
  - Tachycardia [Recovered/Resolved]
  - Angiokeratoma [Unknown]
  - Tinnitus [Unknown]
  - Gastrointestinal disorder [Unknown]
  - Fatigue [Unknown]
